FAERS Safety Report 8852385 (Version 4)
Quarter: 2013Q1

REPORT INFORMATION
  Report Type: Report from Study
  Country: JP (occurrence: JP)
  Receive Date: 20121022
  Receipt Date: 20130311
  Transmission Date: 20140127
  Serious: Yes (Hospitalization)
  Sender: FDA-Public Use
  Company Number: JP-VERTEX PHARMACEUTICAL INC.-2012-023225

PATIENT
  Age: 76 Year
  Sex: Female

DRUGS (9)
  1. VX-950 (TELAPREVIR) [Suspect]
     Indication: CHRONIC HEPATITIS C
     Dosage: 1500 MG, QD
     Route: 048
     Dates: start: 20120816, end: 20120906
  2. PEGINTERFERON ALFA-2B [Suspect]
     Indication: CHRONIC HEPATITIS C
     Dosage: 60 ?G, QW
     Route: 058
     Dates: start: 20120816, end: 20120830
  3. RIBAVIRIN [Concomitant]
     Dosage: 400 MG, QD
     Route: 048
     Dates: start: 20120816, end: 20120906
  4. OLMETEC [Concomitant]
     Dosage: 20 MG, QD
     Route: 048
  5. LENDORMIN DAINIPPO [Concomitant]
     Dosage: 0.25 MG, QD
     Route: 048
  6. LOXONIN [Concomitant]
     Dosage: 60 MG, QD
     Route: 048
     Dates: end: 20120830
  7. MUCOSTA [Concomitant]
     Dosage: 100 MG, QD
     Route: 048
     Dates: end: 20120830
  8. RINDERON-VG [Concomitant]
     Dosage: 10 G, QD
     Route: 048
     Dates: end: 20120920
  9. URSODEOXYCHOLIC ACID [Concomitant]
     Dosage: 600 MG, QD
     Route: 048
     Dates: end: 20120912

REACTIONS (4)
  - Crush injury [Recovered/Resolved]
  - Contusion [Recovered/Resolved]
  - Epistaxis [Recovered/Resolved]
  - Exposure during pregnancy [Unknown]
